FAERS Safety Report 10191867 (Version 1)
Quarter: 2014Q2

REPORT INFORMATION
  Report Type: Spontaneous
  Country: US (occurrence: None)
  Receive Date: 20140522
  Receipt Date: 20140522
  Transmission Date: 20141212
  Serious: Yes (Hospitalization)
  Sender: FDA-Public Use
  Company Number: None

PATIENT
  Age: 56 Year
  Sex: Male
  Weight: 53.52 kg

DRUGS (2)
  1. GEMCITABINE [Suspect]
     Indication: MESOTHELIOMA
     Dosage: DAY 1, 8, 15 OF 28 DAY CYCLE
     Dates: start: 20140326, end: 20140430
  2. MLN8237 [Suspect]
     Indication: MESOTHELIOMA
     Dosage: D 1-3, 8-10, 15-17 OF CYCLE
     Dates: start: 20140326, end: 20140507

REACTIONS (7)
  - Osteomyelitis [None]
  - Haemoglobin decreased [None]
  - Ulcer [None]
  - Toe amputation [None]
  - Culture wound positive [None]
  - Staphylococcus test positive [None]
  - Pseudomonas test positive [None]
